FAERS Safety Report 18458418 (Version 2)
Quarter: 2020Q4

REPORT INFORMATION
  Report Type: Spontaneous
  Country: GB (occurrence: GB)
  Receive Date: 20201103
  Receipt Date: 20201211
  Transmission Date: 20210114
  Serious: Yes (Hospitalization)
  Sender: FDA-Public Use
  Company Number: GB-VERTEX PHARMACEUTICALS-2020-017874

PATIENT
  Age: 9 Year
  Sex: Female

DRUGS (11)
  1. CREON [Concomitant]
     Active Substance: PANCRELIPASE AMYLASE\PANCRELIPASE LIPASE\PANCRELIPASE PROTEASE
     Indication: MALABSORPTION
  2. ORKAMBI [Suspect]
     Active Substance: IVACAFTOR\LUMACAFTOR
     Indication: CYSTIC FIBROSIS
     Dosage: 2 DOSAGE FORM, BID
     Route: 048
     Dates: start: 201912
  3. SALBUTAMOL [Concomitant]
     Active Substance: ALBUTEROL
     Indication: BRONCHOSPASM
  4. URSODEOXYCHOLIC ACID [Concomitant]
     Active Substance: URSODIOL
     Dosage: TO ENCOURAGE BILE DRIANAGE
  5. VITAMIN D [COLECALCIFEROL] [Concomitant]
     Active Substance: CHOLECALCIFEROL
     Dosage: REPLACEMENT
  6. VITAMIN E [Concomitant]
     Active Substance: .ALPHA.-TOCOPHEROL
     Dosage: REPLACEMENT
  7. VITAMIN A [RETINOL] [Concomitant]
     Active Substance: RETINOL
  8. FLUCLOXACILLIN [Concomitant]
     Active Substance: FLUCLOXACILLIN
     Indication: STAPHYLOCOCCAL INFECTION
  9. OMEPRAZOLE. [Concomitant]
     Active Substance: OMEPRAZOLE
     Dosage: TO ENHANCE CREON ABSORPTION
  10. DENASE [Concomitant]
     Dosage: MUCOLYTIC
  11. FLIXOTIDE [Concomitant]
     Active Substance: FLUTICASONE PROPIONATE
     Indication: BRONCHOSPASM

REACTIONS (2)
  - Burkholderia cepacia complex infection [Recovered/Resolved]
  - Lung abscess [Recovered/Resolved]

NARRATIVE: CASE EVENT DATE: 20200124
